FAERS Safety Report 25523976 (Version 3)
Quarter: 2025Q3

REPORT INFORMATION
  Report Type: Spontaneous
  Country: CA (occurrence: CA)
  Receive Date: 20250707
  Receipt Date: 20250728
  Transmission Date: 20251020
  Serious: No
  Sender: PFIZER
  Company Number: CA-PFIZER INC-202500129793

PATIENT
  Age: 14 Year
  Sex: Female

DRUGS (4)
  1. NGENLA [Suspect]
     Active Substance: SOMATROGON-GHLA
     Indication: Growth hormone deficiency
     Dosage: 1 DF, WEEKLY, 21.5 MG WEEKLY FOR 180 DAYS, NEEDLES 32G 4MM
     Route: 058
     Dates: start: 20241222
  2. NGENLA [Suspect]
     Active Substance: SOMATROGON-GHLA
     Dosage: 1 DF, 25.5 MG WEEKLY
     Route: 058
  3. NGENLA [Suspect]
     Active Substance: SOMATROGON-GHLA
     Dosage: 1 DF, 25.5 MG WEEKLY
     Route: 058
  4. SERTRALINE [Concomitant]
     Active Substance: SERTRALINE HYDROCHLORIDE

REACTIONS (2)
  - Injection site pain [Unknown]
  - Needle issue [Unknown]
